FAERS Safety Report 5598732-5 (Version None)
Quarter: 2008Q1

REPORT INFORMATION
  Report Type: 
  Country: None (occurrence: None)
  Receive Date: 20080117
  Receipt Date: 20080111
  Transmission Date: 20080703
  Serious: Yes (Other)
  Sender: FDA-Public Use
  Company Number: GXKR2008DE00456

PATIENT
  Age: 46 Year
  Sex: Female

DRUGS (1)
  1. DICLAC ID (NGX)(DICLOFENAC) UNKNOWN, 150MG [Suspect]
     Dosage: 10 TABLETS ONCE/SINGLE, ORAL
     Route: 048

REACTIONS (4)
  - INTENTIONAL OVERDOSE [None]
  - NAUSEA [None]
  - SUICIDE ATTEMPT [None]
  - VOMITING [None]
